FAERS Safety Report 5341407-8 (Version None)
Quarter: 2007Q2

REPORT INFORMATION
  Report Type: 
  Country: None (occurrence: None)
  Receive Date: 20070530
  Receipt Date: 20070517
  Transmission Date: 20071010
  Serious: Yes (Other)
  Sender: FDA-Public Use
  Company Number: GXKR2007GB04453

PATIENT
  Age: 62 Year
  Sex: Female

DRUGS (7)
  1. METRONIDAZOLE [Suspect]
     Indication: TOOTH ABSCESS
     Dosage: 200 MG, TID, ORAL
     Route: 048
     Dates: start: 20070423, end: 20070428
  2. AMITRIPTYLINE HCL [Concomitant]
  3. AMOXICILLIN [Concomitant]
  4. MELOXICAM [Concomitant]
  5. NEOCLARITYN (DESLORATADINE) [Concomitant]
  6. ACETAMINOPHEN [Concomitant]
  7. QUININE SULFATE [Concomitant]

REACTIONS (4)
  - LIP SWELLING [None]
  - PRURITUS [None]
  - RASH [None]
  - URINE COLOUR ABNORMAL [None]
